FAERS Safety Report 20458942 (Version 4)
Quarter: 2023Q4

REPORT INFORMATION
  Report Type: Spontaneous
  Country: US (occurrence: US)
  Receive Date: 20220211
  Receipt Date: 20231024
  Transmission Date: 20240110
  Serious: Yes (Hospitalization, Other)
  Sender: FDA-Public Use
  Company Number: US-GILEAD-2022-0569140

PATIENT
  Age: 69 Year
  Sex: Female
  Weight: 102.49 kg

DRUGS (37)
  1. COMPLERA [Suspect]
     Active Substance: EMTRICITABINE\RILPIVIRINE HYDROCHLORIDE\TENOFOVIR DISOPROXIL FUMARATE
     Indication: HIV infection
     Dosage: UNK
     Route: 048
     Dates: start: 2008
  2. COMPLERA [Suspect]
     Active Substance: EMTRICITABINE\RILPIVIRINE HYDROCHLORIDE\TENOFOVIR DISOPROXIL FUMARATE
     Dosage: UNK
     Route: 048
     Dates: start: 20150318, end: 20190520
  3. ATRIPLA [Suspect]
     Active Substance: EFAVIRENZ\EMTRICITABINE\TENOFOVIR DISOPROXIL FUMARATE
     Indication: HIV infection
     Dosage: UNK
     Route: 048
     Dates: start: 2008
  4. ATRIPLA [Suspect]
     Active Substance: EFAVIRENZ\EMTRICITABINE\TENOFOVIR DISOPROXIL FUMARATE
     Dosage: UNK
     Route: 048
     Dates: start: 20090528, end: 20100809
  5. TRUVADA [Suspect]
     Active Substance: EMTRICITABINE\TENOFOVIR DISOPROXIL FUMARATE
     Indication: HIV infection
     Dosage: UNK
     Route: 048
     Dates: start: 2008
  6. TRUVADA [Suspect]
     Active Substance: EMTRICITABINE\TENOFOVIR DISOPROXIL FUMARATE
     Dosage: UNK
     Route: 048
     Dates: start: 20100831, end: 20150303
  7. ISENTRESS [Concomitant]
     Active Substance: RALTEGRAVIR POTASSIUM
  8. NORVIR [Concomitant]
     Active Substance: RITONAVIR
  9. ODEFSEY [Concomitant]
     Active Substance: EMTRICITABINE\RILPIVIRINE HYDROCHLORIDE\TENOFOVIR ALAFENAMIDE FUMARATE
  10. REYATAZ [Concomitant]
     Active Substance: ATAZANAVIR SULFATE
  11. TRIUMEQ [Concomitant]
     Active Substance: ABACAVIR SULFATE\DOLUTEGRAVIR SODIUM\LAMIVUDINE
  12. ATENOLOL [Concomitant]
     Active Substance: ATENOLOL
  13. CODEINE [Concomitant]
     Active Substance: CODEINE
  14. OXYCODONE [Concomitant]
     Active Substance: OXYCODONE
  15. ASPIRIN [Concomitant]
     Active Substance: ASPIRIN
  16. FLUNISOLIDE [Concomitant]
     Active Substance: FLUNISOLIDE
  17. FEXOFENADINE [Concomitant]
     Active Substance: FEXOFENADINE HYDROCHLORIDE
  18. ADVIL PM [DIPHENHYDRAMINE CITRATE;IBUPROFEN] [Concomitant]
  19. IBUPROFEN [Concomitant]
     Active Substance: IBUPROFEN
  20. ZOLPIDEM [Concomitant]
     Active Substance: ZOLPIDEM TARTRATE
  21. AZELASTINE [Concomitant]
     Active Substance: AZELASTINE
  22. ROSUVASTATIN [Concomitant]
     Active Substance: ROSUVASTATIN
  23. OMEPRAZOLE [Concomitant]
     Active Substance: OMEPRAZOLE
  24. TYLENOL [Concomitant]
     Active Substance: ACETAMINOPHEN
  25. VALACYCLOVIR HYDROCHLORIDE [Concomitant]
     Active Substance: VALACYCLOVIR HYDROCHLORIDE
  26. FAMOTIDINE [Concomitant]
     Active Substance: FAMOTIDINE
  27. POTASSIUM CHLORIDE [Concomitant]
     Active Substance: POTASSIUM CHLORIDE
  28. FAMCICLOVIR [Concomitant]
     Active Substance: FAMCICLOVIR
  29. TRAMADOL [Concomitant]
     Active Substance: TRAMADOL\TRAMADOL HYDROCHLORIDE
  30. AMOXICILLIN [Concomitant]
     Active Substance: AMOXICILLIN
  31. SULFAMETHOXAZOLE AND TRIMETHOPRIM [Concomitant]
     Active Substance: SULFAMETHOXAZOLE\TRIMETHOPRIM
  32. ZOLOFT [Concomitant]
     Active Substance: SERTRALINE HYDROCHLORIDE
  33. HYDROMORPHONE [Concomitant]
     Active Substance: HYDROMORPHONE
  34. NYSTATIN [Concomitant]
     Active Substance: NYSTATIN
  35. CETIRIZINE [Concomitant]
     Active Substance: CETIRIZINE HYDROCHLORIDE
  36. AUGMENTIN [Concomitant]
     Active Substance: AMOXICILLIN\CLAVULANATE POTASSIUM
  37. CANNABIS SATIVA SUBSP. INDICA TOP [Concomitant]
     Active Substance: CANNABIS SATIVA SUBSP. INDICA TOP

REACTIONS (25)
  - Osteoporosis [Not Recovered/Not Resolved]
  - Ankle fracture [Not Recovered/Not Resolved]
  - Suicidal ideation [Unknown]
  - Osteopenia [Not Recovered/Not Resolved]
  - Bone demineralisation [Unknown]
  - Pain [Not Recovered/Not Resolved]
  - Emotional distress [Not Recovered/Not Resolved]
  - Anxiety [Not Recovered/Not Resolved]
  - Anhedonia [Not Recovered/Not Resolved]
  - Gait disturbance [Unknown]
  - Fall [Unknown]
  - Pain in extremity [Unknown]
  - Mobility decreased [Unknown]
  - Teeth brittle [Unknown]
  - Arthralgia [Unknown]
  - Hypoaesthesia [Unknown]
  - General physical health deterioration [Unknown]
  - Depression [Not Recovered/Not Resolved]
  - Psychiatric symptom [Unknown]
  - Depressed mood [Unknown]
  - Fear [Unknown]
  - Nightmare [Unknown]
  - Tremor [Unknown]
  - Heart rate increased [Unknown]
  - Post-traumatic stress disorder [Not Recovered/Not Resolved]

NARRATIVE: CASE EVENT DATE: 20100101
